FAERS Safety Report 19906075 (Version 1)
Quarter: 2021Q3

REPORT INFORMATION
  Report Type: Spontaneous
  Country: DE (occurrence: DE)
  Receive Date: 20210930
  Receipt Date: 20210930
  Transmission Date: 20211014
  Serious: Yes (Hospitalization)
  Sender: FDA-Public Use
  Company Number: DE-MYLANLABS-2021M1066507

PATIENT
  Age: 90 Year
  Sex: Male

DRUGS (10)
  1. CLOPIDOGREL [Suspect]
     Active Substance: CLOPIDOGREL BISULFATE
     Indication: PRODUCT USED FOR UNKNOWN INDICATION
     Dosage: 75 MILLIGRAM, QD (75 MG, 1?0?0?0, TABLETTEN)
     Route: 048
  2. METOPROLOL. [Concomitant]
     Active Substance: METOPROLOL
     Dosage: UNK (95 MG, 1?0?1?0, TABLETTEN)
     Route: 048
  3. AMLODIPIN                          /00972401/ [Concomitant]
     Active Substance: AMLODIPINE BESYLATE
     Dosage: UNK (5 MG, BEI BEDARF, TABLETTEN)
     Route: 048
  4. TIOTROPIUM BROMIDE [Concomitant]
     Active Substance: TIOTROPIUM BROMIDE
     Dosage: UNK (18 ?G, 1?0?1?0, KAPSELN MIT INHALATIONSPULVER)
     Route: 055
  5. TINZAPARIN [Suspect]
     Active Substance: TINZAPARIN
     Indication: PRODUCT USED FOR UNKNOWN INDICATION
     Dosage: UNK (INJEKTIONS?/INFUSIONSLOSUNG)
     Route: 058
  6. SACUBITRIL VALSARTAN SODIUM HYDRATE [Concomitant]
     Active Substance: SACUBITRIL\VALSARTAN
     Dosage: UNK (56.53 MG, 1?0?0?0, TABLETTEN)
     Route: 048
  7. TORASEMID [Concomitant]
     Active Substance: TORSEMIDE
     Dosage: UNK (10 MG, 1?1?0?0, TABLETTEN)
     Route: 048
  8. METFORMIN [Concomitant]
     Active Substance: METFORMIN HYDROCHLORIDE
     Dosage: UNK (1000 MG, 0?0.5?0?0.5, TABLETTEN)
     Route: 048
  9. EDOXABAN [Concomitant]
     Active Substance: EDOXABAN TOSYLATE
     Dosage: UNK (30 MG, 1?0?0?0, TABLETTEN)
     Route: 048
  10. SPIRONOLACTON [Concomitant]
     Active Substance: SPIRONOLACTONE
     Dosage: UNK (50 MG, 0?0.5?0?0, TABLETTEN)
     Route: 048

REACTIONS (2)
  - Syncope [Recovering/Resolving]
  - Haematochezia [Recovering/Resolving]
